FAERS Safety Report 5800984-0 (Version None)
Quarter: 2008Q3

REPORT INFORMATION
  Report Type: 
  Country: None (occurrence: None)
  Receive Date: 20080702
  Receipt Date: 20080616
  Transmission Date: 20090109
  Serious: Yes (Hospitalization)
  Sender: FDA-Public Use
  Company Number: 2008AL007082

PATIENT
  Age: 90 Year
  Sex: Male

DRUGS (2)
  1. DIGOXIN [Suspect]
     Indication: CARDIAC DISORDER
     Dosage: 1 TABLET DAILY PO
     Route: 048
  2. COUMADIN [Concomitant]

REACTIONS (5)
  - ASTHENIA [None]
  - DYSPNOEA [None]
  - FALL [None]
  - HYPERTENSION [None]
  - MYOCARDIAL INFARCTION [None]
